FAERS Safety Report 8818897 (Version 4)
Quarter: 2013Q1

REPORT INFORMATION
  Report Type: Spontaneous
  Country: BR (occurrence: BR)
  Receive Date: 20121001
  Receipt Date: 20130325
  Transmission Date: 20140127
  Serious: Yes (Other)
  Sender: FDA-Public Use
  Company Number: PHHY2012BR084218

PATIENT
  Sex: Female

DRUGS (6)
  1. DIOVAN [Suspect]
     Indication: HYPERTENSION
     Dosage: 320 MG, DAILY
     Route: 048
     Dates: end: 201212
  2. DIOVAN [Suspect]
     Dosage: 320 MG, DAILY
     Route: 048
  3. DIOVAN HCT [Suspect]
     Indication: HYPERTENSION
     Dosage: 1 DF (320 MG VALS/ 12.5 MG HCTZ), DAILY
     Route: 048
     Dates: end: 2012
  4. PURAN T4 [Concomitant]
     Indication: HYPOTHYROIDISM
     Dosage: 88 UG, DAILY
     Route: 048
  5. CARDIZEM [Concomitant]
     Indication: HYPERTENSION
     Dosage: 180 MG, DAILY
     Route: 048
  6. CARDIZEM [Concomitant]
     Dosage: 90 MG, DAILY
     Route: 048
     Dates: start: 2012

REACTIONS (8)
  - Convulsion [Not Recovered/Not Resolved]
  - Blood sodium decreased [Not Recovered/Not Resolved]
  - Blood pressure inadequately controlled [Recovering/Resolving]
  - Syncope [Recovering/Resolving]
  - Hypotension [Recovering/Resolving]
  - Feeling hot [Not Recovered/Not Resolved]
  - Malaise [Recovering/Resolving]
  - Fatigue [Recovering/Resolving]
